FAERS Safety Report 6069117-2 (Version None)
Quarter: 2009Q1

REPORT INFORMATION
  Report Type: 
  Country: None (occurrence: None)
  Receive Date: 20090203
  Receipt Date: 20090119
  Transmission Date: 20090719
  Serious: Yes (Death)
  Sender: FDA-Public Use
  Company Number: 09-003

PATIENT
  Age: 58 Year
  Sex: Female

DRUGS (2)
  1. CEFTRIAXONE [Suspect]
     Dosage: INTRAMUSCULAR
     Route: 030
     Dates: start: 20060101, end: 20060101
  2. LIIDOCAINE [Concomitant]

REACTIONS (1)
  - ANAPHYLACTIC REACTION [None]
